FAERS Safety Report 9872101 (Version 1)
Quarter: 2014Q1

REPORT INFORMATION
  Report Type: Spontaneous
  Country: US (occurrence: US)
  Receive Date: 20140205
  Receipt Date: 20140205
  Transmission Date: 20141002
  Serious: No
  Sender: FDA-Public Use
  Company Number: US-ALLERGAN-1307026US

PATIENT
  Age: 68 Year
  Sex: Female

DRUGS (5)
  1. BOTOX COSMETIC [Suspect]
     Indication: SKIN WRINKLING
     Dosage: 25 UNITS, SINGLE
     Route: 030
     Dates: start: 20130507, end: 20130507
  2. BOTOX COSMETIC [Suspect]
     Dosage: UNK, SINGLE
     Route: 030
     Dates: start: 201301, end: 201301
  3. CHOLESTEROL MEDICATION NOS [Concomitant]
     Indication: BLOOD CHOLESTEROL INCREASED
     Dosage: UNK
     Dates: start: 1993
  4. BLOOD PRESSURE MEDICATION [Concomitant]
     Indication: HYPERTENSION
     Dosage: UNK
     Dates: start: 1993
  5. IMURAN                             /00001501/ [Concomitant]
     Indication: CROHN^S DISEASE
     Dosage: UNK
     Dates: start: 1993

REACTIONS (3)
  - Off label use [Unknown]
  - Drug ineffective [Unknown]
  - Therapeutic response decreased [Unknown]
